FAERS Safety Report 6635591-3 (Version None)
Quarter: 2010Q1

REPORT INFORMATION
  Report Type: 
  Country: None (occurrence: None)
  Receive Date: 20100315
  Receipt Date: 20100310
  Transmission Date: 20100710
  Serious: Yes (Life-Threatening, Hospitalization, Disabling)
  Sender: FDA-Public Use
  Company Number: US-MERCK-1002USA04042

PATIENT
  Age: 14 Year
  Sex: Female

DRUGS (7)
  1. SINGULAIR [Suspect]
     Indication: ASTHMA
     Route: 048
  2. SINGULAIR [Suspect]
     Route: 048
     Dates: start: 20100114, end: 20100101
  3. SINGULAIR [Suspect]
     Indication: RHINITIS ALLERGIC
     Route: 048
  4. SINGULAIR [Suspect]
     Route: 048
     Dates: start: 20100114, end: 20100101
  5. ADVAIR DISKUS 100/50 [Concomitant]
     Route: 065
  6. CORTICOSTEROIDS (UNSPECIFIED) [Concomitant]
     Route: 065
  7. COUGH, COLD, AND FLU THERAPIES (UNSPECIFIED) [Concomitant]
     Route: 065

REACTIONS (4)
  - DEPRESSION [None]
  - MOOD ALTERED [None]
  - SOCIAL AVOIDANT BEHAVIOUR [None]
  - SUICIDAL IDEATION [None]
